FAERS Safety Report 4666232-2 (Version None)
Quarter: 2005Q2

REPORT INFORMATION
  Report Type: 
  Country: None (occurrence: None)
  Receive Date: 20050517
  Receipt Date: 20050517
  Transmission Date: 20051028
  Serious: No
  Sender: FDA-Public Use
  Company Number: None

PATIENT
  Age: 35 Year
  Sex: Male

DRUGS (2)
  1. OXYCODONE HCL [Suspect]
     Indication: INTERVERTEBRAL DISC DISORDER
     Dosage: ONE PO BID    2-3 MOS FROM PRESENT
     Route: 048
  2. OXYCODONE HCL [Suspect]
     Indication: RADICULOPATHY
     Dosage: ONE PO BID    2-3 MOS FROM PRESENT
     Route: 048

REACTIONS (3)
  - DRUG INEFFECTIVE [None]
  - INADEQUATE ANALGESIA [None]
  - THERAPEUTIC RESPONSE UNEXPECTED WITH DRUG SUBSTITUTION [None]
